FAERS Safety Report 24119633 (Version 1)
Quarter: 2024Q3

REPORT INFORMATION
  Report Type: Spontaneous
  Country: CA (occurrence: CA)
  Receive Date: 20240722
  Receipt Date: 20240722
  Transmission Date: 20241017
  Serious: Yes (Other)
  Sender: MYLAN
  Company Number: CA-MYLANLABS-2024M1066744

PATIENT
  Age: 64 Year
  Sex: Female
  Weight: 65.77 kg

DRUGS (3)
  1. PANTOPRAZOLE [Suspect]
     Active Substance: PANTOPRAZOLE
     Indication: Ulcer
     Dosage: 40 MILLIGRAM, QD
     Route: 065
  2. PANTOPRAZOLE [Suspect]
     Active Substance: PANTOPRAZOLE
     Dosage: 80 MILLIGRAM
     Route: 065
  3. CAPTOPRIL [Concomitant]
     Active Substance: CAPTOPRIL
     Indication: Blood pressure measurement
     Dosage: UNK
     Route: 065

REACTIONS (3)
  - Pancreatitis [Unknown]
  - Ulcer haemorrhage [Unknown]
  - Off label use [Unknown]
